FAERS Safety Report 9187556 (Version 2)
Quarter: 2013Q2

REPORT INFORMATION
  Report Type: Spontaneous
  Country: US (occurrence: US)
  Receive Date: 20130325
  Receipt Date: 20130409
  Transmission Date: 20140414
  Serious: No
  Sender: FDA-Public Use
  Company Number: US-PFIZER INC-2013094378

PATIENT
  Age: 67 Year
  Sex: Male

DRUGS (7)
  1. SUTENT [Suspect]
     Indication: RENAL CANCER
     Dosage: 50 MG, UNK
     Dates: start: 20130304
  2. HYDRALAZINE HYDROCHLORIDE [Concomitant]
     Dosage: UNK
  3. HYDROMORPHONE HYDROCHLORIDE [Concomitant]
     Dosage: UNK
  4. PRIMOX PLUS [Concomitant]
     Dosage: UNK
  5. MS CONTIN [Concomitant]
     Dosage: UNK
  6. NIFEDIPINE [Concomitant]
     Dosage: UNK
  7. PANTOPRAZOLE SODIUM [Concomitant]
     Dosage: UNK

REACTIONS (2)
  - Palmar-plantar erythrodysaesthesia syndrome [Unknown]
  - Hypotension [Unknown]
